FAERS Safety Report 20358957 (Version 3)
Quarter: 2022Q2

REPORT INFORMATION
  Report Type: Spontaneous
  Country: US (occurrence: US)
  Receive Date: 20220120
  Receipt Date: 20220412
  Transmission Date: 20220721
  Serious: No
  Sender: FDA-Public Use
  Company Number: US-VIIV HEALTHCARE LIMITED-US2022AMR009110

PATIENT
  Age: 44 Year
  Sex: Male

DRUGS (2)
  1. RILPIVIRINE [Suspect]
     Active Substance: RILPIVIRINE
     Indication: Product used for unknown indication
     Dosage: UNK (400/600)
     Route: 065
  2. CABOTEGRAVIR [Suspect]
     Active Substance: CABOTEGRAVIR
     Indication: Product used for unknown indication
     Dosage: UNK (400/600)
     Route: 065

REACTIONS (5)
  - Exposure via skin contact [Recovered/Resolved]
  - Incorrect dose administered [Unknown]
  - Injection site extravasation [Recovered/Resolved]
  - Wrong technique in device usage process [Unknown]
  - Incorrect disposal of product [Unknown]
